FAERS Safety Report 18601551 (Version 5)
Quarter: 2022Q2

REPORT INFORMATION
  Report Type: Spontaneous
  Country: US (occurrence: US)
  Receive Date: 20201210
  Receipt Date: 20220614
  Transmission Date: 20220721
  Serious: Yes (Hospitalization, Other)
  Sender: FDA-Public Use
  Company Number: US-PFIZER INC-2019156768

PATIENT
  Age: 60 Year
  Sex: Female

DRUGS (1)
  1. XELJANZ XR [Suspect]
     Active Substance: TOFACITINIB CITRATE
     Dosage: 11 MG, DAILY (DIRECTIONS TAKE 1 TABLET (11 MG) BY ORAL ROUTE ONCE DAILY)
     Route: 048
     Dates: start: 20190201

REACTIONS (1)
  - COVID-19 [Unknown]
